FAERS Safety Report 10416930 (Version 2)
Quarter: 2014Q3

REPORT INFORMATION
  Report Type: Spontaneous
  Country: US (occurrence: None)
  Receive Date: 20140826
  Receipt Date: 20140930
  Transmission Date: 20150326
  Serious: Yes (Hospitalization)
  Sender: FDA-Public Use
  Company Number: FK201403385

PATIENT
  Age: 59 Year
  Sex: Male
  Weight: 88.6 kg

DRUGS (15)
  1. ASPIRIN (ACETYLSALICYLIC ACID) [Concomitant]
     Active Substance: ASPIRIN
  2. PAXIL (PIROXICAM) [Concomitant]
  3. OXALIPLATIN. [Suspect]
     Active Substance: OXALIPLATIN
     Indication: PANCREATIC CARCINOMA
     Dosage: 169 MG, 2 WK, INTRAVENOUS(NOT OTHER WISE SPECIFIED)
     Route: 042
     Dates: start: 20140407, end: 20140407
  4. IRINOTECAN HCL [Suspect]
     Active Substance: IRINOTECAN HYDROCHLORIDE
     Indication: PANCREATIC CARCINOMA
     Dates: start: 20140407, end: 20140407
  5. OMEPRAZOLE. [Concomitant]
     Active Substance: OMEPRAZOLE
  6. TRAMADOL HYDROCHLORIDE. [Concomitant]
     Active Substance: TRAMADOL HYDROCHLORIDE
  7. LEUCOVORIN CALCIUM. [Suspect]
     Active Substance: LEUCOVORIN CALCIUM
     Indication: PANCREATIC CARCINOMA
     Dates: start: 20140407, end: 20140407
  8. BENZTROPINE MESYLATE (BENZATROPINE MESILATE) [Concomitant]
  9. FLUOROURACIL. [Suspect]
     Active Substance: FLUOROURACIL
     Indication: PANCREATIC CARCINOMA
     Route: 040
     Dates: start: 20140407, end: 20140417
  10. FLOMAX [Concomitant]
     Active Substance: TAMSULOSIN HYDROCHLORIDE
  11. TRAZODONE [Concomitant]
     Active Substance: TRAZODONE HYDROCHLORIDE
  12. GLIMEPIRIDE. [Concomitant]
     Active Substance: GLIMEPIRIDE
  13. ARIPIPRAZOLE [Concomitant]
     Active Substance: ARIPIPRAZOLE
  14. BUSPIRONE [Concomitant]
     Active Substance: BUSPIRONE HYDROCHLORIDE
  15. INVESTIGATIONAL DRUG [Suspect]
     Active Substance: INVESTIGATIONAL PRODUCT
     Indication: PANCREATIC CARCINOMA
     Route: 048
     Dates: start: 20140407, end: 20140417

REACTIONS (8)
  - Faecal incontinence [None]
  - Fall [None]
  - Blood sodium decreased [None]
  - Urinary incontinence [None]
  - Confusional state [None]
  - Platelet count decreased [None]
  - Muscular weakness [None]
  - Neutropenia [None]

NARRATIVE: CASE EVENT DATE: 20140417
